FAERS Safety Report 8541052-7 (Version None)
Quarter: 2012Q3

REPORT INFORMATION
  Report Type: 
  Country: None (occurrence: None)
  Receive Date: 20120726
  Receipt Date: 20110818
  Transmission Date: 20120928
  Serious: No
  Sender: FDA-Public Use
  Company Number: US-ASTRAZENECA-2011SE49918

PATIENT
  Age: 11 Year
  Sex: Male

DRUGS (3)
  1. ABILIFY [Concomitant]
  2. SEROQUEL [Suspect]
     Indication: BIPOLAR DISORDER
     Dosage: 200 MG IN THE MORING AND 300 MG AT NIGHT
     Route: 048
  3. CELEXA [Concomitant]

REACTIONS (3)
  - GENITAL DISCOMFORT [None]
  - ENURESIS [None]
  - OFF LABEL USE [None]
